FAERS Safety Report 24841017 (Version 1)
Quarter: 2025Q1

REPORT INFORMATION
  Report Type: Spontaneous
  Country: US (occurrence: US)
  Receive Date: 20250114
  Receipt Date: 20250114
  Transmission Date: 20250409
  Serious: Yes (Hospitalization, Other)
  Sender: PFIZER
  Company Number: US-PFIZER INC-PV202500004094

PATIENT
  Age: 70 Year
  Sex: Male

DRUGS (16)
  1. FENTANYL CITRATE [Suspect]
     Active Substance: FENTANYL CITRATE
     Dates: start: 202411
  2. DUPIXENT [Suspect]
     Active Substance: DUPILUMAB
     Indication: Pruritus
  3. AMLODIPINE BESYLATE [Concomitant]
     Active Substance: AMLODIPINE BESYLATE
  4. ASPIRIN [Concomitant]
     Active Substance: ASPIRIN
  5. DICLOFENAC SODIUM [Concomitant]
     Active Substance: DICLOFENAC SODIUM
  6. EFFIENT [Concomitant]
     Active Substance: PRASUGREL HYDROCHLORIDE
  7. ENTRESTO [Concomitant]
     Active Substance: SACUBITRIL\VALSARTAN
  8. FINASTERIDE [Concomitant]
     Active Substance: FINASTERIDE
  9. FUROSEMIDE [Concomitant]
     Active Substance: FUROSEMIDE
  10. JARDIANCE [Concomitant]
     Active Substance: EMPAGLIFLOZIN
  11. LEVOTHYROXINE [Concomitant]
     Active Substance: LEVOTHYROXINE
  12. NEBIVOLOL [Concomitant]
     Active Substance: NEBIVOLOL
  13. NITROGLYCERIN [Concomitant]
     Active Substance: NITROGLYCERIN
  14. ROSUVASTATIN CALCIUM [Concomitant]
     Active Substance: ROSUVASTATIN CALCIUM
  15. SPIRONOLACTONE [Concomitant]
     Active Substance: SPIRONOLACTONE
  16. ZETIA [Concomitant]
     Active Substance: EZETIMIBE

REACTIONS (5)
  - Cardiac operation [Unknown]
  - Skin swelling [Not Recovered/Not Resolved]
  - Skin haemorrhage [Not Recovered/Not Resolved]
  - Scratch [Not Recovered/Not Resolved]
  - Pruritus [Unknown]

NARRATIVE: CASE EVENT DATE: 20241101
